FAERS Safety Report 20034711 (Version 1)
Quarter: 2021Q4

REPORT INFORMATION
  Report Type: Spontaneous
  Country: FR (occurrence: FR)
  Receive Date: 20211104
  Receipt Date: 20211104
  Transmission Date: 20220303
  Serious: Yes (Other)
  Sender: FDA-Public Use
  Company Number: FR-ELI_LILLY_AND_COMPANY-FR202110011563

PATIENT
  Age: 84 Year
  Sex: Female

DRUGS (1)
  1. OLUMIANT [Suspect]
     Active Substance: BARICITINIB
     Indication: Systemic lupus erythematosus
     Dosage: UNK, UNKNOWN
     Route: 048

REACTIONS (3)
  - Malignant melanoma [Unknown]
  - Skin lesion [Unknown]
  - Off label use [Unknown]
